FAERS Safety Report 17159084 (Version 1)
Quarter: 2019Q4

REPORT INFORMATION
  Report Type: Spontaneous
  Country: US (occurrence: US)
  Receive Date: 20191214
  Receipt Date: 20191214
  Transmission Date: 20200122
  Serious: Yes (Hospitalization)
  Sender: FDA-Public Use
  Company Number: None

PATIENT
  Age: 61 Year
  Sex: Female
  Weight: 78.2 kg

DRUGS (4)
  1. LEVOTHYROXINE 125MCG DAILY [Concomitant]
  2. RIVAROXABAN [Suspect]
     Active Substance: RIVAROXABAN
     Indication: THROMBOSIS PROPHYLAXIS
     Route: 048
     Dates: start: 20160308
  3. FLUCONAZOLE 100MG DAILY [Concomitant]
  4. FUROSEMIDE 20MG DAILY [Concomitant]

REACTIONS (8)
  - Generalised oedema [None]
  - Decreased appetite [None]
  - Gastrointestinal haemorrhage [None]
  - Blood alkaline phosphatase increased [None]
  - Cachexia [None]
  - Abdominal pain lower [None]
  - Blood albumin decreased [None]
  - Thrombophlebitis superficial [None]

NARRATIVE: CASE EVENT DATE: 20160310
